FAERS Safety Report 8665401 (Version 8)
Quarter: 2014Q1

REPORT INFORMATION
  Report Type: Spontaneous
  Country: EG (occurrence: EG)
  Receive Date: 20120716
  Receipt Date: 20140211
  Transmission Date: 20141002
  Serious: Yes (Other)
  Sender: FDA-Public Use
  Company Number: EG-JNJFOC-20120704099

PATIENT
  Age: 27 Year
  Sex: Female
  Weight: 54 kg

DRUGS (5)
  1. REMICADE [Suspect]
     Indication: COLITIS ULCERATIVE
     Route: 042
     Dates: start: 20120708
  2. PARIET [Concomitant]
     Indication: GASTROOESOPHAGEAL REFLUX DISEASE
     Route: 048
  3. BRUFEN [Concomitant]
     Indication: ANALGESIC THERAPY
     Route: 030
  4. PENTASA [Concomitant]
     Indication: COLITIS ULCERATIVE
     Route: 048
  5. UNKNOWN MEDICATION [Concomitant]
     Route: 065

REACTIONS (10)
  - Psoriasis [Recovering/Resolving]
  - Headache [Recovered/Resolved]
  - Rash [Recovering/Resolving]
  - Local swelling [Recovered/Resolved]
  - Pyrexia [Recovered/Resolved]
  - Hypotension [Recovered/Resolved]
  - Heart rate increased [Recovered/Resolved]
  - Fatigue [Recovered/Resolved]
  - Local swelling [Recovering/Resolving]
  - Dry skin [Recovering/Resolving]
